FAERS Safety Report 16607994 (Version 1)
Quarter: 2019Q3

REPORT INFORMATION
  Report Type: Spontaneous
  Country: US (occurrence: US)
  Receive Date: 20190719
  Receipt Date: 20190719
  Transmission Date: 20191004
  Serious: Yes (Disabling)
  Sender: FDA-Public Use
  Company Number: None

PATIENT
  Age: 54 Year
  Sex: Female
  Weight: 103.5 kg

DRUGS (1)
  1. ACITRETIN. [Suspect]
     Active Substance: ACITRETIN
     Indication: PSORIASIS
     Route: 048
     Dates: start: 20181005, end: 20190408

REACTIONS (6)
  - Madarosis [None]
  - Lip dry [None]
  - Multiple sclerosis [None]
  - Hypoaesthesia [None]
  - Dry eye [None]
  - Urinary incontinence [None]

NARRATIVE: CASE EVENT DATE: 20190408
